FAERS Safety Report 8900585 (Version 2)
Quarter: 2012Q4

REPORT INFORMATION
  Report Type: 
  Country: JP (occurrence: JP)
  Receive Date: 20121109
  Receipt Date: 20121126
  Transmission Date: 20130627
  Serious: No
  Sender: FDA-Public Use
  Company Number: JP-PFIZER INC-2012276360

PATIENT
  Age: 13 Year
  Sex: Female

DRUGS (3)
  1. ZITHROMAC SR [Suspect]
     Indication: ACUTE SINUSITIS
     Dosage: 2 g, UNK
     Route: 048
     Dates: start: 20121031
  2. MUCODYNE [Concomitant]
     Dosage: 500 mg, 3x/day
  3. TALION [Concomitant]
     Dosage: 10 mg, 2x/day

REACTIONS (2)
  - Rhinitis [Recovered/Resolved]
  - Oedema [Recovered/Resolved]
